FAERS Safety Report 7636120-8 (Version None)
Quarter: 2011Q3

REPORT INFORMATION
  Report Type: 
  Country: None (occurrence: None)
  Receive Date: 20110719
  Receipt Date: 20110705
  Transmission Date: 20111222
  Serious: Yes (Other)
  Sender: FDA-Public Use
  Company Number: 947729

PATIENT
  Age: 24 Year
  Sex: Female

DRUGS (15)
  1. (INSULIN GLARGINE) [Concomitant]
  2. CREON [Concomitant]
  3. (VITAMIN E /00110501/) [Concomitant]
  4. (FERROUS SULPHATE /00023503/) [Concomitant]
  5. (FLUTICASONE) [Concomitant]
  6. MESALAMINE [Concomitant]
  7. OMEPRAZOLE [Concomitant]
  8. (COLOMYCIN /00013203/) [Concomitant]
  9. (PROMIXIN /00210601/) [Concomitant]
  10. (CALCIUM AND ERGOCALCIFEROL) [Concomitant]
  11. MEROPENEM [Suspect]
     Indication: PRODUCT USED FOR UNKNOWN INDICATION
     Dosage: 2 G GRAM(S), INTRAVENOUS (NOT OTHERWISE SPECIFIED)
     Route: 042
     Dates: start: 20110428, end: 20110428
  12. (VITAMIN A+D /00343801/) [Concomitant]
  13. (SERETIDE) [Concomitant]
  14. PULMOZYME [Concomitant]
  15. ALBUTEROL [Concomitant]

REACTIONS (4)
  - FEELING HOT [None]
  - PRURITUS [None]
  - NAUSEA [None]
  - RASH [None]
